FAERS Safety Report 11322379 (Version 1)
Quarter: 2015Q3

REPORT INFORMATION
  Report Type: Spontaneous
  Country: US (occurrence: None)
  Receive Date: 20150729
  Receipt Date: 20150729
  Transmission Date: 20151125
  Serious: Yes (Death)
  Sender: FDA-Public Use
  Company Number: None

PATIENT
  Age: 62 Year
  Sex: Female
  Weight: 106 kg

DRUGS (1)
  1. CEFEPIME [Suspect]
     Active Substance: CEFEPIME HYDROCHLORIDE
     Route: 042

REACTIONS (9)
  - Dialysis [None]
  - General physical health deterioration [None]
  - Status epilepticus [None]
  - Brain oedema [None]
  - Brain death [None]
  - Acute kidney injury [None]
  - Brain herniation [None]
  - Confusional state [None]
  - Mental status changes [None]

NARRATIVE: CASE EVENT DATE: 20150616
